FAERS Safety Report 18218211 (Version 2)
Quarter: 2020Q4

REPORT INFORMATION
  Report Type: Spontaneous
  Country: DE (occurrence: DE)
  Receive Date: 20200901
  Receipt Date: 20201013
  Transmission Date: 20210113
  Serious: Yes (Other)
  Sender: FDA-Public Use
  Company Number: DE-PFIZER INC-2020334817

PATIENT
  Sex: Male
  Weight: 61 kg

DRUGS (11)
  1. RITUXIMAB. [Suspect]
     Active Substance: RITUXIMAB
     Indication: DIFFUSE LARGE B-CELL LYMPHOMA
     Dosage: ADJUVANT, R-CHOP 6 CYCLES
     Route: 065
     Dates: start: 201408, end: 201411
  2. RITUXIMAB. [Suspect]
     Active Substance: RITUXIMAB
     Dosage: FURTHER LINES, RITUXIMAB/ GEMCITABINE/ OXALIPLATIN
     Route: 065
     Dates: start: 201808, end: 2019
  3. CYTARABINE. [Concomitant]
     Active Substance: CYTARABINE
     Indication: DIFFUSE LARGE B-CELL LYMPHOMA
     Dosage: THREE CYCLES, FIRST LINE THERAPY
     Dates: start: 201412, end: 2015
  4. CYCLOPHOSPHAMIDE. [Suspect]
     Active Substance: CYCLOPHOSPHAMIDE
     Indication: DIFFUSE LARGE B-CELL LYMPHOMA
     Dosage: ADJUVANT R-CHOP 6 CYCLES
     Route: 065
     Dates: start: 201408, end: 201411
  5. DOXORUBICIN HYDROCHLORIDE. [Suspect]
     Active Substance: DOXORUBICIN HYDROCHLORIDE
     Indication: DIFFUSE LARGE B-CELL LYMPHOMA
     Dosage: ADJUVANT R-CHOP 6 CYCLES
     Route: 065
     Dates: start: 201408, end: 201411
  6. GEMCITABINE. [Suspect]
     Active Substance: GEMCITABINE
     Indication: DIFFUSE LARGE B-CELL LYMPHOMA
     Dosage: IN COMBINATION WITH RITUXIMAB AND OXALIPLATIN
     Route: 065
     Dates: start: 201808, end: 2019
  7. PREDNISONE. [Suspect]
     Active Substance: PREDNISONE
     Indication: DIFFUSE LARGE B-CELL LYMPHOMA
     Dosage: ADJUVANT R-CHOP 6 CYCLES
     Route: 065
     Dates: start: 201408, end: 201411
  8. DEXAMETHASONE. [Concomitant]
     Active Substance: DEXAMETHASONE
     Indication: DIFFUSE LARGE B-CELL LYMPHOMA
     Dosage: THREE CYCLES, FIRST LINE THERAPY
     Dates: start: 201412, end: 2015
  9. VINCRISTINE SULFATE. [Suspect]
     Active Substance: VINCRISTINE SULFATE
     Indication: DIFFUSE LARGE B-CELL LYMPHOMA
     Dosage: ADJUVANT R-CHOP 6 CYCLES
     Route: 065
     Dates: start: 201408, end: 201411
  10. CISPLATIN. [Concomitant]
     Active Substance: CISPLATIN
     Indication: DIFFUSE LARGE B-CELL LYMPHOMA
     Dosage: THREE CYCLES, FIRST LINE THERAPY
     Dates: start: 201412, end: 2015
  11. OXALIPLATIN. [Suspect]
     Active Substance: OXALIPLATIN
     Indication: DIFFUSE LARGE B-CELL LYMPHOMA
     Dosage: IN COMBINATION WITH RITUXIMAB AND GEMCITABIN
     Route: 065
     Dates: start: 201808, end: 2019

REACTIONS (3)
  - Blood bilirubin increased [Unknown]
  - Platelet count decreased [Unknown]
  - Haemoglobin decreased [Unknown]
